FAERS Safety Report 5026292-6 (Version None)
Quarter: 2006Q2

REPORT INFORMATION
  Report Type: 
  Country: None (occurrence: None)
  Receive Date: 20060426
  Receipt Date: 20060120
  Transmission Date: 20061013
  Serious: Yes (Other)
  Sender: FDA-Public Use
  Company Number: 2006012169

PATIENT
  Age: 22 Year
  Sex: Male
  Weight: 83.9154 kg

DRUGS (8)
  1. LYRICA [Suspect]
     Indication: NEURALGIA
     Dosage: (50 MG, 1 D)
     Dates: start: 20060119
  2. COMPAZINE [Concomitant]
  3. ZOFRAN [Concomitant]
  4. NORTRIPTYLINE HCL [Concomitant]
  5. WELLBUTRIN [Concomitant]
  6. ADDERALL 10 [Concomitant]
  7. TRANXENE [Concomitant]
  8. NORFLEX [Concomitant]

REACTIONS (4)
  - ANGINA PECTORIS [None]
  - BACK PAIN [None]
  - HYPOAESTHESIA [None]
  - PAIN [None]
